FAERS Safety Report 7115387-9 (Version None)
Quarter: 2010Q4

REPORT INFORMATION
  Report Type: 
  Country: None (occurrence: None)
  Receive Date: 20101122
  Receipt Date: 20101111
  Transmission Date: 20110411
  Serious: Yes (Hospitalization)
  Sender: FDA-Public Use
  Company Number: KR-JNJFOC-20101105061

PATIENT
  Age: 51 Year
  Sex: Female

DRUGS (9)
  1. DUROGESIC D TARNS [Suspect]
     Indication: BACK PAIN
     Route: 062
  2. DUROGESIC D TARNS [Suspect]
     Dosage: HALF A PATCH OF 12.5 UG/HR, STOPPED  APPROXIMATELY ON 07-NOV-2010
     Route: 062
  3. DUROGESIC D TARNS [Suspect]
     Route: 062
  4. DUROGESIC D TARNS [Suspect]
     Indication: PAIN IN EXTREMITY
     Route: 062
  5. DUROGESIC D TARNS [Suspect]
     Route: 062
  6. DUROGESIC D TARNS [Suspect]
     Dosage: HALF A PATCH OF 12.5 UG/HR, STOPPED  APPROXIMATELY ON 07-NOV-2010
     Route: 062
  7. DUROGESIC D TARNS [Suspect]
     Indication: PAIN MANAGEMENT
     Route: 062
  8. DUROGESIC D TARNS [Suspect]
     Route: 062
  9. DUROGESIC D TARNS [Suspect]
     Dosage: HALF A PATCH OF 12.5 UG/HR, STOPPED  APPROXIMATELY ON 07-NOV-2010
     Route: 062

REACTIONS (5)
  - DRUG INEFFECTIVE [None]
  - INADEQUATE ANALGESIA [None]
  - NAUSEA [None]
  - VOMITING [None]
  - WRONG TECHNIQUE IN DRUG USAGE PROCESS [None]
